FAERS Safety Report 5284527-9 (Version None)
Quarter: 2007Q2

REPORT INFORMATION
  Report Type: 
  Country: None (occurrence: None)
  Receive Date: 20070403
  Receipt Date: 20070330
  Transmission Date: 20071010
  Serious: Yes (Hospitalization)
  Sender: FDA-Public Use
  Company Number: US-GLAXOSMITHKLINE-A0645111A

PATIENT
  Age: 27 Year
  Sex: Male

DRUGS (1)
  1. LAMOTRIGINE [Suspect]
     Dosage: 100MG PER DAY
     Route: 048
     Dates: start: 20070223, end: 20070324

REACTIONS (2)
  - ABDOMINAL PAIN UPPER [None]
  - APPENDICITIS PERFORATED [None]
